FAERS Safety Report 9490377 (Version 2)
Quarter: 2013Q4

REPORT INFORMATION
  Report Type: Spontaneous
  Country: US (occurrence: US)
  Receive Date: 20130830
  Receipt Date: 20131015
  Transmission Date: 20140711
  Serious: Yes (Life-Threatening)
  Sender: FDA-Public Use
  Company Number: US-ROCHE-1267973

PATIENT
  Age: 30 Year
  Sex: Female
  Weight: 87 kg

DRUGS (34)
  1. KADCYLA [Suspect]
     Indication: HER-2 POSITIVE BREAST CANCER
     Route: 042
     Dates: start: 20130301, end: 20130411
  2. FERROUS SULPHATE [Concomitant]
     Route: 065
  3. ALTEPLASE [Concomitant]
  4. ENOXAPARIN [Concomitant]
  5. VITAMIN B6 [Concomitant]
  6. FRAGMIN [Concomitant]
     Indication: DEEP VEIN THROMBOSIS
  7. DILAUDID [Concomitant]
     Indication: PAIN
  8. ZOFRAN [Concomitant]
     Indication: NAUSEA
  9. CIPROFLOXACIN [Concomitant]
     Route: 048
  10. VANCOMYCIN [Concomitant]
     Route: 042
     Dates: start: 20130519, end: 20130602
  11. CEFEPIME [Concomitant]
  12. AZITHROMYCIN [Concomitant]
  13. TAMIFLU [Concomitant]
  14. ALBUTEROL [Concomitant]
     Route: 065
  15. LORAZEPAM [Concomitant]
     Route: 048
  16. HYDROMORPHONE [Concomitant]
     Route: 048
  17. SENNA [Concomitant]
  18. DALTEPARIN [Concomitant]
     Route: 058
  19. DILAUDID [Concomitant]
     Route: 048
  20. COREG [Concomitant]
     Route: 048
  21. ZOSYN [Concomitant]
  22. FLUCONAZOLE [Concomitant]
  23. BUMEX [Concomitant]
  24. FENTANYL [Concomitant]
  25. FUROSEMIDE [Concomitant]
  26. MAGNESIUM OXIDE [Concomitant]
  27. MAGNESIUM SULFATE [Concomitant]
  28. PIPERACILLIN/TAZOBACTAM SODIUM [Concomitant]
  29. SODIUM CHLORIDE [Concomitant]
  30. POTASSIUM CHLORIDE [Concomitant]
  31. SODIUM BICARBONATE [Concomitant]
  32. HEPARIN [Concomitant]
  33. PETROLATUM [Concomitant]
  34. POLYETHYLENE GLYCOL [Concomitant]

REACTIONS (1)
  - Respiratory failure [Recovered/Resolved]
